FAERS Safety Report 7589463-0 (Version None)
Quarter: 2011Q3

REPORT INFORMATION
  Report Type: 
  Country: None (occurrence: None)
  Receive Date: 20110705
  Receipt Date: 20110622
  Transmission Date: 20111222
  Serious: Yes (Other)
  Sender: FDA-Public Use
  Company Number: DE-JNJFOC-20110600647

PATIENT
  Sex: Male
  Weight: 95 kg

DRUGS (6)
  1. NSAID'S [Concomitant]
     Indication: PAIN
     Route: 065
  2. TARGIN [Concomitant]
     Indication: PAIN
  3. KATADOLON [Concomitant]
     Indication: PAIN
     Route: 065
  4. TAPENTADOL [Suspect]
     Indication: BACK PAIN
     Route: 065
  5. NOVALGIN [Concomitant]
     Indication: PAIN
     Route: 065
  6. ANALGESICS [Concomitant]
     Indication: PAIN
     Route: 065

REACTIONS (2)
  - ANGINA PECTORIS [None]
  - DYSPNOEA [None]
